FAERS Safety Report 7730856-6 (Version None)
Quarter: 2011Q3

REPORT INFORMATION
  Report Type: 
  Country: None (occurrence: None)
  Receive Date: 20110906
  Receipt Date: 20110830
  Transmission Date: 20111222
  Serious: Yes (Hospitalization)
  Sender: FDA-Public Use
  Company Number: JP-ACTELION-A-CH2011-53431

PATIENT
  Sex: Female
  Weight: 58 kg

DRUGS (11)
  1. TRACLEER [Suspect]
     Indication: PULMONARY ARTERIAL HYPERTENSION
     Dosage: 15.63 MG, BID
     Route: 048
     Dates: start: 20100605, end: 20100702
  2. LOXOPROFEN SODIUM [Concomitant]
  3. BERAPROST SODIUM [Concomitant]
  4. CANDESARTAN CILEXETIL [Concomitant]
  5. DIMETHYL FUMARATE [Concomitant]
  6. FAMOTIDINE [Concomitant]
  7. TADALAFIL [Concomitant]
  8. FLUNITRAZEPAM [Concomitant]
  9. TANDOSPIRONE CITRATE [Concomitant]
  10. OXYGEN [Concomitant]
  11. AMLODIPINE BESILATE [Concomitant]

REACTIONS (2)
  - HEPATIC FUNCTION ABNORMAL [None]
  - NASOPHARYNGITIS [None]
